FAERS Safety Report 17593468 (Version 2)
Quarter: 2020Q2

REPORT INFORMATION
  Report Type: Spontaneous
  Country: US (occurrence: US)
  Receive Date: 20200327
  Receipt Date: 20200514
  Transmission Date: 20200713
  Serious: No
  Sender: FDA-Public Use
  Company Number: US-TEVA-2020-US-1212264

PATIENT
  Age: 6 Decade
  Sex: Female

DRUGS (1)
  1. FLUOXETINE TEVA [Suspect]
     Active Substance: FLUOXETINE HYDROCHLORIDE
     Route: 065

REACTIONS (2)
  - Dyspepsia [Recovered/Resolved]
  - Wrong technique in product usage process [Unknown]
